FAERS Safety Report 9959655 (Version 1)
Quarter: 2014Q1

REPORT INFORMATION
  Report Type: Spontaneous
  Country: US (occurrence: None)
  Receive Date: 20140228
  Receipt Date: 20140228
  Transmission Date: 20141002
  Serious: Yes (Hospitalization)
  Sender: FDA-Public Use
  Company Number: None

PATIENT
  Sex: Male
  Weight: 116.8 kg

DRUGS (1)
  1. RIVAROXABAN [Suspect]
     Route: 048
     Dates: start: 20140216

REACTIONS (3)
  - Haemorrhage intracranial [None]
  - Endocarditis [None]
  - Septic embolus [None]
